FAERS Safety Report 4375671-9 (Version None)
Quarter: 2004Q2

REPORT INFORMATION
  Report Type: 
  Country: None (occurrence: None)
  Receive Date: 20040607
  Receipt Date: 20040526
  Transmission Date: 20050107
  Serious: Yes (Hospitalization)
  Sender: FDA-Public Use
  Company Number: US-JNJFOC-20040506601

PATIENT
  Age: 47 Year

DRUGS (9)
  1. ULTRAM [Suspect]
     Indication: BACK PAIN
     Dosage: 100 MG, 4 IN 1 DAY, ORAL
     Route: 048
  2. DURAGESIC [Suspect]
     Dosage: TRANSDERMAL
     Route: 062
     Dates: start: 20040522
  3. LOPRESSOR [Concomitant]
  4. K-DUR 10 [Concomitant]
  5. CALCITRIOL [Concomitant]
  6. PRIMIDONE [Concomitant]
  7. DILAUDID [Concomitant]
  8. PHENERGAN [Concomitant]
  9. DEMEROL [Concomitant]

REACTIONS (6)
  - DRUG WITHDRAWAL SYNDROME [None]
  - HYPERTHERMIA [None]
  - HYPOXIA [None]
  - LACTIC ACIDOSIS [None]
  - METABOLIC ACIDOSIS [None]
  - MUSCLE RIGIDITY [None]
